FAERS Safety Report 6969144-4 (Version None)
Quarter: 2010Q3

REPORT INFORMATION
  Report Type: 
  Country: None (occurrence: None)
  Receive Date: 20100907
  Receipt Date: 20100831
  Transmission Date: 20110219
  Serious: Yes (Other)
  Sender: FDA-Public Use
  Company Number: FR-BRISTOL-MYERS SQUIBB COMPANY-15267503

PATIENT
  Age: 40 Year
  Sex: Male

DRUGS (3)
  1. REYATAZ [Suspect]
     Indication: HIV INFECTION
     Route: 048
     Dates: start: 20051017, end: 20090616
  2. NORVIR [Concomitant]
     Indication: ANTIRETROVIRAL THERAPY
     Dates: start: 20051017
  3. KIVEXA [Concomitant]
     Indication: ANTIRETROVIRAL THERAPY
     Dates: start: 20060419

REACTIONS (3)
  - CALCULUS URETERIC [None]
  - NEPHROLITHIASIS [None]
  - RENAL COLIC [None]
